FAERS Safety Report 24651491 (Version 2)
Quarter: 2024Q4

REPORT INFORMATION
  Report Type: Spontaneous
  Country: VE (occurrence: VE)
  Receive Date: 20241122
  Receipt Date: 20241126
  Transmission Date: 20250115
  Serious: Yes (Hospitalization, Other)
  Sender: NOVARTIS
  Company Number: VE-002147023-NVSC2024VE223946

PATIENT
  Sex: Male

DRUGS (1)
  1. GLIVEC [Suspect]
     Active Substance: IMATINIB MESYLATE
     Indication: Philadelphia positive acute lymphocytic leukaemia
     Dosage: 400 MG 4 X 100MG
     Route: 065

REACTIONS (4)
  - Cerebrovascular accident [Unknown]
  - Speech disorder [Unknown]
  - Gait disturbance [Unknown]
  - Arrhythmia [Unknown]
